FAERS Safety Report 12052070 (Version 2)
Quarter: 2016Q1

REPORT INFORMATION
  Report Type: Spontaneous
  Country: AT (occurrence: AT)
  Receive Date: 20160209
  Receipt Date: 20160216
  Transmission Date: 20160526
  Serious: Yes (Other)
  Sender: FDA-Public Use
  Company Number: AT-ASTRAZENECA-2016SE11389

PATIENT
  Age: 16 Year
  Sex: Female

DRUGS (21)
  1. SEROQUEL XR [Suspect]
     Active Substance: QUETIAPINE FUMARATE
     Indication: PERSONALITY DISORDER
     Route: 048
     Dates: start: 20151109
  2. SEROQUEL XR [Suspect]
     Active Substance: QUETIAPINE FUMARATE
     Indication: URINARY RETENTION
     Route: 048
  3. NOZINAN [Suspect]
     Active Substance: LEVOMEPROMAZINE
     Route: 065
     Dates: start: 20151107, end: 20151107
  4. SEROQUEL XR [Suspect]
     Active Substance: QUETIAPINE FUMARATE
     Indication: POST-TRAUMATIC STRESS DISORDER
     Route: 048
  5. DEPAKINE [Concomitant]
     Active Substance: VALPROATE SODIUM
     Route: 065
     Dates: start: 20151108
  6. SEROQUEL XR [Suspect]
     Active Substance: QUETIAPINE FUMARATE
     Indication: PERSONALITY DISORDER
     Route: 048
     Dates: end: 20151108
  7. SEROQUEL XR [Suspect]
     Active Substance: QUETIAPINE FUMARATE
     Indication: CHRONIC TIC DISORDER
     Route: 048
     Dates: start: 20151109
  8. SEROQUEL XR [Suspect]
     Active Substance: QUETIAPINE FUMARATE
     Indication: URINARY RETENTION
     Route: 048
     Dates: start: 20151109
  9. SEROQUEL XR [Suspect]
     Active Substance: QUETIAPINE FUMARATE
     Indication: PERSONALITY DISORDER
     Route: 048
  10. NOZINAN [Suspect]
     Active Substance: LEVOMEPROMAZINE
     Route: 065
     Dates: start: 20151106, end: 20151106
  11. SEROQUEL XR [Suspect]
     Active Substance: QUETIAPINE FUMARATE
     Indication: POST-TRAUMATIC STRESS DISORDER
     Route: 048
     Dates: end: 20151108
  12. TEMESTA EXP [Suspect]
     Active Substance: LORAZEPAM
     Route: 048
     Dates: start: 20151107, end: 20151107
  13. DEPAKINE [Concomitant]
     Active Substance: VALPROATE SODIUM
     Dosage: INCREASED TILL 1000 MG
     Route: 065
  14. TRUXAL [Concomitant]
     Active Substance: CHLORPROTHIXENE
     Route: 065
  15. SEROQUEL XR [Suspect]
     Active Substance: QUETIAPINE FUMARATE
     Indication: CHRONIC TIC DISORDER
     Route: 048
     Dates: end: 20151108
  16. SEROQUEL XR [Suspect]
     Active Substance: QUETIAPINE FUMARATE
     Indication: URINARY RETENTION
     Route: 048
     Dates: end: 20151108
  17. GEWACALM [Concomitant]
     Active Substance: DIAZEPAM
     Route: 065
  18. SEROQUEL XR [Suspect]
     Active Substance: QUETIAPINE FUMARATE
     Indication: POST-TRAUMATIC STRESS DISORDER
     Route: 048
     Dates: start: 20151109
  19. SEROQUEL XR [Suspect]
     Active Substance: QUETIAPINE FUMARATE
     Indication: CHRONIC TIC DISORDER
     Route: 048
  20. ABILIFY [Suspect]
     Active Substance: ARIPIPRAZOLE
     Route: 065
     Dates: start: 20151105, end: 20151108
  21. ABILIFY [Suspect]
     Active Substance: ARIPIPRAZOLE
     Route: 065
     Dates: start: 20151109, end: 20151111

REACTIONS (5)
  - Micturition urgency [Unknown]
  - Abdominal pain lower [Unknown]
  - Urinary retention [Recovered/Resolved]
  - Off label use [Unknown]
  - Product use issue [Unknown]

NARRATIVE: CASE EVENT DATE: 20151108
